FAERS Safety Report 19570788 (Version 1)
Quarter: 2021Q3

REPORT INFORMATION
  Report Type: Spontaneous
  Country: CA (occurrence: CA)
  Receive Date: 20210715
  Receipt Date: 20210715
  Transmission Date: 20211014
  Serious: Yes (Other)
  Sender: FDA-Public Use
  Company Number: CA-HLS-202107974

PATIENT
  Age: 51 Year
  Sex: Male

DRUGS (5)
  1. PMS?CLONAZEPAM?R [Concomitant]
     Indication: PRODUCT USED FOR UNKNOWN INDICATION
     Dosage: 2 EVERY 1 DAYS
     Route: 048
  2. CLOZAPINE. [Suspect]
     Active Substance: CLOZAPINE
     Indication: SCHIZOPHRENIA
     Route: 046
  3. OLANZAPINE. [Concomitant]
     Active Substance: OLANZAPINE
     Indication: PRODUCT USED FOR UNKNOWN INDICATION
     Route: 048
  4. ABILIFY MAINTENA [Concomitant]
     Active Substance: ARIPIPRAZOLE
     Indication: PRODUCT USED FOR UNKNOWN INDICATION
     Dosage: KIT , 1 EVERY 21 DAYS
     Route: 030
  5. PMS?ATENOLOL [Concomitant]
     Indication: PRODUCT USED FOR UNKNOWN INDICATION
     Dosage: 1 EVERY 1 DAYS
     Route: 048

REACTIONS (8)
  - Multi-organ disorder [Recovered/Resolved]
  - Eosinophilia [Recovered/Resolved]
  - Neutrophil count increased [Recovered/Resolved]
  - Monocyte count increased [Recovered/Resolved]
  - Myelocyte count increased [Recovered/Resolved]
  - White blood cell count increased [Recovered/Resolved]
  - Myocarditis [Recovered/Resolved]
  - Influenza like illness [Recovered/Resolved]
